FAERS Safety Report 7434021-1 (Version None)
Quarter: 2011Q2

REPORT INFORMATION
  Report Type: 
  Country: None (occurrence: None)
  Receive Date: 20110421
  Receipt Date: 20110421
  Transmission Date: 20111010
  Serious: Yes (Hospitalization)
  Sender: FDA-Public Use
  Company Number: None

PATIENT
  Sex: Female
  Weight: 115.7 kg

DRUGS (3)
  1. CARBOPLATIN [Suspect]
     Dosage: 660 MG
     Dates: end: 20110414
  2. DOCETAXEL [Suspect]
     Dosage: 137 MG
     Dates: end: 20110414
  3. TRASTUZUMAB (HERCEPTIN) [Suspect]
     Dosage: 225 MG
     Dates: end: 20110414

REACTIONS (5)
  - VOMITING [None]
  - FATIGUE [None]
  - DIARRHOEA [None]
  - NAUSEA [None]
  - COUGH [None]
